FAERS Safety Report 7683766-7 (Version None)
Quarter: 2011Q3

REPORT INFORMATION
  Report Type: 
  Country: None (occurrence: None)
  Receive Date: 20110810
  Receipt Date: 20110729
  Transmission Date: 20111222
  Serious: Yes (Hospitalization)
  Sender: FDA-Public Use
  Company Number: GER/UKI/11/0020519

PATIENT
  Age: 80 Year
  Sex: Female

DRUGS (9)
  1. OMEPRAZOLE [Concomitant]
  2. AMITRIPTYLINE HCL [Concomitant]
  3. ADCAL-D3 (LEKOVIT CA) [Concomitant]
  4. ZOPICLONE (ZOPICLONE) [Concomitant]
  5. ALENDRONATE SODIUM [Suspect]
     Indication: PRODUCT USED FOR UNKNOWN INDICATION
     Dosage: 70 MG, 1 IN 1 WK, ORAL
     Route: 048
     Dates: end: 20110510
  6. ASPIRIN [Concomitant]
  7. PROPRANOLOL [Concomitant]
  8. SIMVASTATIN [Concomitant]
  9. TOLTERODINE TARTRATE [Concomitant]

REACTIONS (3)
  - OESOPHAGEAL STENOSIS [None]
  - OSTEONECROSIS OF JAW [None]
  - ABSCESS JAW [None]
